FAERS Safety Report 7297366-4 (Version None)
Quarter: 2011Q1

REPORT INFORMATION
  Report Type: 
  Country: None (occurrence: None)
  Receive Date: 20110216
  Receipt Date: 20110117
  Transmission Date: 20110831
  Serious: No
  Sender: FDA-Public Use
  Company Number: US-BAYER-2011-005921

PATIENT
  Sex: Female
  Weight: 54 kg

DRUGS (2)
  1. ALEVE (CAPLET) [Suspect]
     Indication: HEADACHE
     Dosage: 440 MG, QD, BOTTLE COUNT 50S
     Dates: start: 20110115, end: 20110115
  2. ALEVE (CAPLET) [Suspect]
     Dosage: 440 MG, QD, BOTTLE COUNT 50S
     Dates: start: 20110117

REACTIONS (1)
  - HEADACHE [None]
